FAERS Safety Report 7364549-4 (Version None)
Quarter: 2011Q1

REPORT INFORMATION
  Report Type: 
  Country: None (occurrence: None)
  Receive Date: 20110321
  Receipt Date: 20110307
  Transmission Date: 20110831
  Serious: Yes (Hospitalization, Other)
  Sender: FDA-Public Use
  Company Number: US-BAYER-201034068NA

PATIENT
  Sex: Female

DRUGS (5)
  1. YAZ [Suspect]
     Indication: DYSMENORRHOEA
     Route: 048
  2. YASMIN [Suspect]
     Indication: DYSMENORRHOEA
     Route: 048
  3. ACIPHEX [Concomitant]
     Indication: GASTRITIS
  4. ALLEGRA [Concomitant]
  5. ALBUTEROL [Concomitant]

REACTIONS (3)
  - CHOLELITHIASIS [None]
  - DEEP VEIN THROMBOSIS [None]
  - CHOLECYSTITIS CHRONIC [None]
